FAERS Safety Report 22869448 (Version 6)
Quarter: 2023Q4

REPORT INFORMATION
  Report Type: Spontaneous
  Country: IT (occurrence: IT)
  Receive Date: 20230826
  Receipt Date: 20231026
  Transmission Date: 20240110
  Serious: Yes (Hospitalization, Other)
  Sender: FDA-Public Use
  Company Number: IT-DSJP-DSJ-2023-132596

PATIENT
  Age: 6 Day
  Sex: Male
  Weight: 3.4 kg

DRUGS (1)
  1. OLMESARTAN [Suspect]
     Active Substance: OLMESARTAN
     Indication: Hypertension
     Dosage: 10 MILLIGRAM
     Route: 063

REACTIONS (5)
  - Hypertransaminasaemia [Recovered/Resolved]
  - Exposure via breast milk [Recovered/Resolved]
  - Weight decreased [Recovering/Resolving]
  - Off label use [Unknown]
  - Liver injury [Unknown]
